FAERS Safety Report 25940055 (Version 2)
Quarter: 2025Q4

REPORT INFORMATION
  Report Type: Report from Study
  Country: PY (occurrence: PY)
  Receive Date: 20251020
  Receipt Date: 20251223
  Transmission Date: 20260118
  Serious: No
  Sender: ROCHE
  Company Number: PY-ROCHE-10000409141

PATIENT
  Age: 39 Year
  Sex: Female

DRUGS (1)
  1. ACTEMRA [Suspect]
     Active Substance: TOCILIZUMAB
     Indication: Rheumatoid arthritis
     Dosage: DOSE WAS NOT REPORTED.
     Route: 058

REACTIONS (2)
  - Benign neoplasm of thyroid gland [Recovering/Resolving]
  - Intentional product misuse [Unknown]
